FAERS Safety Report 8932684 (Version 1)
Quarter: 2012Q4

REPORT INFORMATION
  Report Type: 
  Country: FR (occurrence: FR)
  Receive Date: 20121129
  Receipt Date: 20121129
  Transmission Date: 20130627
  Serious: Yes (Hospitalization)
  Sender: FDA-Public Use
  Company Number: FR-009507513-1211FRA011931

PATIENT
  Age: 34 Year
  Sex: Male

DRUGS (10)
  1. SINGULAIR [Suspect]
     Dosage: UNK
  2. LAROXYL [Suspect]
     Dosage: UNK
  3. INEXIUM [Suspect]
     Dosage: UNK
     Route: 048
  4. GABAPENTIN [Suspect]
     Dosage: UNK
     Route: 048
  5. BACLOFEN [Suspect]
     Dosage: UNK
     Route: 048
  6. INNOVAIR [Suspect]
     Dosage: UNK
  7. DIFFU-K [Suspect]
     Dosage: UNK
     Route: 048
  8. DITROPAN [Suspect]
     Dosage: UNK
     Route: 048
  9. GUTRON [Suspect]
     Dosage: UNK
     Route: 048
  10. DANTRIUM [Suspect]
     Dosage: UNK
     Route: 048

REACTIONS (2)
  - Inappropriate antidiuretic hormone secretion [Recovered/Resolved]
  - Hyponatraemia [Recovered/Resolved]
